FAERS Safety Report 25412514 (Version 1)
Quarter: 2025Q2

REPORT INFORMATION
  Report Type: Spontaneous
  Country: US (occurrence: None)
  Receive Date: 20250606
  Receipt Date: 20250606
  Transmission Date: 20250716
  Serious: Yes (unspecified)
  Sender: FDA-CTU
  Company Number: None

PATIENT
  Age: 15 Month
  Sex: Female
  Weight: 17.55 kg

DRUGS (3)
  1. AVEENO BABY ECZEMA THERAPY MOISTURIZING [Suspect]
     Active Substance: OATMEAL
     Indication: Eczema
     Dates: start: 20240828, end: 20250526
  2. COSMETICS [Suspect]
     Active Substance: COSMETICS
  3. Triamcinolone was used for the hives [Concomitant]

REACTIONS (1)
  - Hypersensitivity [None]

NARRATIVE: CASE EVENT DATE: 20240829
